FAERS Safety Report 8665134 (Version 3)
Quarter: 2013Q3

REPORT INFORMATION
  Report Type: Spontaneous
  Country: US (occurrence: US)
  Receive Date: 20120716
  Receipt Date: 20130825
  Transmission Date: 20140515
  Serious: Yes (Other)
  Sender: FDA-Public Use
  Company Number: US-009507513-1207USA000781

PATIENT
  Sex: Female

DRUGS (2)
  1. REBETOL [Suspect]
     Indication: HEPATITIS C
     Dosage: UNK
     Dates: start: 20120409, end: 20120924
  2. PEGINTRON [Suspect]
     Indication: HEPATITIS C
     Dosage: UNK
     Dates: start: 20120409, end: 20120924

REACTIONS (20)
  - Memory impairment [Unknown]
  - Malaise [Unknown]
  - Decreased appetite [Unknown]
  - Vomiting [Unknown]
  - Neck pain [Unknown]
  - Brain scan abnormal [Unknown]
  - Anaemia [Unknown]
  - Nausea [Unknown]
  - Abdominal pain upper [Unknown]
  - Headache [Unknown]
  - Anaemia [Unknown]
  - Haemoglobin decreased [Unknown]
  - Vasculitis [Unknown]
  - Rash [Unknown]
  - Oedema [Unknown]
  - Skin disorder [Unknown]
  - Memory impairment [Unknown]
  - Pain [Unknown]
  - Haemoglobin decreased [Unknown]
  - Vasculitis [Unknown]
